FAERS Safety Report 5045408-9 (Version None)
Quarter: 2006Q3

REPORT INFORMATION
  Report Type: 
  Country: None (occurrence: None)
  Receive Date: 20060707
  Receipt Date: 20060630
  Transmission Date: 20061208
  Serious: Yes (Hospitalization)
  Sender: FDA-Public Use
  Company Number: US-MERCK-0606USA05702

PATIENT
  Age: 48 Year
  Sex: Male
  Weight: 86 kg

DRUGS (3)
  1. VYTORIN [Suspect]
     Route: 048
     Dates: start: 20060201
  2. VYTORIN [Suspect]
     Route: 048
     Dates: start: 20060403
  3. ACIPHEX [Concomitant]
     Indication: BARRETT'S OESOPHAGUS
     Route: 048
     Dates: start: 20020201

REACTIONS (2)
  - ANAESTHESIA [None]
  - DIZZINESS [None]
